FAERS Safety Report 17790577 (Version 1)
Quarter: 2020Q2

REPORT INFORMATION
  Report Type: Spontaneous
  Country: CN (occurrence: CN)
  Receive Date: 20200514
  Receipt Date: 20200514
  Transmission Date: 20200714
  Serious: Yes (Hospitalization)
  Sender: FDA-Public Use
  Company Number: CN-NOVOPROD-727443

PATIENT
  Sex: Female
  Weight: 6.3 kg

DRUGS (1)
  1. NOVORAPID [Suspect]
     Active Substance: INSULIN ASPART
     Indication: GESTATIONAL DIABETES
     Dosage: 3 IU, TID
     Route: 064
     Dates: start: 20200220

REACTIONS (4)
  - Jaundice neonatal [Recovered/Resolved]
  - Foetal exposure during pregnancy [Recovered/Resolved]
  - Premature baby [Unknown]
  - Neonatal aspiration [Recovered/Resolved]

NARRATIVE: CASE EVENT DATE: 20200220
